FAERS Safety Report 8769624 (Version 1)
Quarter: 2012Q4

REPORT INFORMATION
  Report Type: 
  Country: US (occurrence: US)
  Receive Date: 20120905
  Receipt Date: 20120905
  Transmission Date: 20130627
  Serious: Yes (Other)
  Sender: FDA-Public Use
  Company Number: US-MYLANLABS-2011S1016874

PATIENT
  Age: 27 Year
  Sex: Female
  Weight: 72.58 kg

DRUGS (5)
  1. BUTORPHANOL TARTRATE NASAL SPRAY, USP [Suspect]
     Indication: HEADACHE
     Route: 045
  2. PROZAC [Concomitant]
     Indication: ANXIETY
  3. SEROQUEL [Concomitant]
  4. XANAX [Concomitant]
     Indication: ANXIETY
     Dates: start: 201107
  5. VALIUM [Concomitant]
     Indication: ANXIETY
     Dates: start: 201107

REACTIONS (3)
  - Drug ineffective [Not Recovered/Not Resolved]
  - Headache [Not Recovered/Not Resolved]
  - Nausea [Not Recovered/Not Resolved]
